FAERS Safety Report 14223899 (Version 6)
Quarter: 2018Q1

REPORT INFORMATION
  Report Type: Report from Study
  Country: None (occurrence: US)
  Receive Date: 20171126
  Receipt Date: 20180319
  Transmission Date: 20180508
  Serious: Yes (Other)
  Sender: FDA-Public Use
  Company Number: US-ABBVIE-17K-163-2173218-00

PATIENT
  Age: 44 Year
  Sex: Female
  Weight: 63.56 kg

DRUGS (11)
  1. HUMIRA [Suspect]
     Active Substance: ADALIMUMAB
     Route: 058
     Dates: start: 20170624, end: 201710
  2. PANTOPRAZOLE [Concomitant]
     Active Substance: PANTOPRAZOLE
     Indication: CROHN^S DISEASE
  3. ALPRAZOLAM. [Concomitant]
     Active Substance: ALPRAZOLAM
     Indication: ANXIETY
  4. EFFEXOR [Concomitant]
     Active Substance: VENLAFAXINE HYDROCHLORIDE
     Indication: ANXIETY
  5. VENLAFAXINE [Concomitant]
     Active Substance: VENLAFAXINE HYDROCHLORIDE
     Indication: ANXIETY
  6. ALEVE [Concomitant]
     Active Substance: NAPROXEN SODIUM
     Indication: CROHN^S DISEASE
  7. HUMIRA [Suspect]
     Active Substance: ADALIMUMAB
     Indication: CROHN^S DISEASE
     Dosage: LOADING DOSE ON DAY 1
     Route: 058
     Dates: start: 20170527, end: 20170527
  8. BENADRYL [Concomitant]
     Active Substance: DIPHENHYDRAMINE HYDROCHLORIDE
     Indication: INSOMNIA
  9. MARIJUANA [Concomitant]
     Active Substance: CANNABIS SATIVA SUBSP. INDICA TOP
     Indication: CROHN^S DISEASE
  10. XANAX [Concomitant]
     Active Substance: ALPRAZOLAM
     Indication: ANXIETY
  11. HUMIRA [Suspect]
     Active Substance: ADALIMUMAB
     Dosage: DAY 15
     Route: 058
     Dates: start: 20170610, end: 20170610

REACTIONS (16)
  - Fatigue [Recovered/Resolved]
  - Diarrhoea [Unknown]
  - Lower limb fracture [Not Recovered/Not Resolved]
  - Weight decreased [Unknown]
  - Constipation [Unknown]
  - Insomnia [Unknown]
  - Nausea [Unknown]
  - Anxiety [Unknown]
  - Drug ineffective [Unknown]
  - Injection site bruising [Unknown]
  - Fall [Unknown]
  - Lipoma [Recovering/Resolving]
  - Frequent bowel movements [Unknown]
  - Miliaria [Recovered/Resolved]
  - Decreased appetite [Unknown]
  - Flatulence [Unknown]

NARRATIVE: CASE EVENT DATE: 2017
